FAERS Safety Report 7132778-0 (Version None)
Quarter: 2010Q4

REPORT INFORMATION
  Report Type: 
  Country: None (occurrence: None)
  Receive Date: 20101202
  Receipt Date: 20101119
  Transmission Date: 20110411
  Serious: Yes (Other)
  Sender: FDA-Public Use
  Company Number: US-PFIZER INC-2010153513

PATIENT
  Sex: Female
  Weight: 99.773 kg

DRUGS (4)
  1. LYRICA [Suspect]
     Indication: FIBROMYALGIA
     Dosage: UNK
     Dates: start: 20100301, end: 20100101
  2. LEVOTHYROXINE [Concomitant]
     Dosage: UNK
  3. ESTRADIOL [Concomitant]
     Dosage: UNK
  4. PERCOCET [Concomitant]
     Dosage: UNK

REACTIONS (17)
  - ABDOMINAL DISTENSION [None]
  - ANXIETY [None]
  - APHASIA [None]
  - BLISTER [None]
  - CHEST PAIN [None]
  - DYSKINESIA [None]
  - DYSPNOEA [None]
  - FATIGUE [None]
  - FLATULENCE [None]
  - GASTRITIS [None]
  - INFLUENZA LIKE ILLNESS [None]
  - LOSS OF LIBIDO [None]
  - MEMORY IMPAIRMENT [None]
  - NAUSEA [None]
  - TINNITUS [None]
  - URINARY INCONTINENCE [None]
  - VISION BLURRED [None]
